FAERS Safety Report 5918473-1 (Version None)
Quarter: 2008Q4

REPORT INFORMATION
  Report Type: 
  Country: None (occurrence: None)
  Receive Date: 20081015
  Receipt Date: 20081008
  Transmission Date: 20090506
  Serious: Yes (Life-Threatening, Other)
  Sender: FDA-Public Use
  Company Number: FR-BRISTOL-MYERS SQUIBB COMPANY-14363014

PATIENT
  Age: 70 Year
  Sex: Female

DRUGS (9)
  1. AXEPIM INJ 2 GM [Suspect]
     Route: 042
     Dates: start: 20080918, end: 20080922
  2. SKENAN PROL RELEASE GRAN CAPS 30 MG [Suspect]
     Route: 048
     Dates: start: 20080918, end: 20080922
  3. DOLIPRANE [Suspect]
     Dosage: 2 DOSAGE FORM=2 UNITS.
     Route: 048
     Dates: start: 20080918, end: 20080922
  4. PROZAC [Suspect]
     Route: 048
     Dates: start: 20080919, end: 20080922
  5. LEXOMIL [Suspect]
     Dosage: 1 DOSAGE FORM=0.75 UNITS
     Route: 048
     Dates: start: 20080919, end: 20080922
  6. FORLAX [Suspect]
     Route: 048
     Dates: start: 20080919, end: 20080922
  7. LOVENOX [Suspect]
     Route: 058
     Dates: start: 20080919, end: 20080922
  8. MOPRAL [Suspect]
     Dosage: 1 DOSAGE FORM=1 UNIT.
     Route: 048
     Dates: start: 20080918, end: 20080922
  9. LEVOTHYROX [Concomitant]
     Route: 048

REACTIONS (6)
  - CONVULSION [None]
  - DRUG LEVEL INCREASED [None]
  - ENCEPHALOPATHY [None]
  - EPILEPSY [None]
  - RENAL FAILURE [None]
  - RESPIRATORY DISORDER [None]
